FAERS Safety Report 9988222 (Version 2)
Quarter: 2014Q1

REPORT INFORMATION
  Report Type: Spontaneous
  Country: US (occurrence: US)
  Receive Date: 20140309
  Receipt Date: 20140309
  Transmission Date: 20141002
  Serious: Yes (Disabling)
  Sender: FDA-Public Use
  Company Number: US-GE HEALTHCARE MEDICAL DIAGNOSTICS-OSCN-PR-1104S-0104

PATIENT
  Age: 53 Year
  Sex: Female

DRUGS (4)
  1. OMNISCAN [Suspect]
     Indication: RENAL ARTERY STENOSIS
     Route: 065
     Dates: start: 20070206, end: 20070206
  2. MULTIHANCE [Suspect]
     Indication: OSTEOMYELITIS
     Route: 065
     Dates: start: 20080730, end: 20080730
  3. MULTIHANCE [Suspect]
     Indication: BACK PAIN
     Route: 065
     Dates: start: 20091119, end: 20091119
  4. OPTIMARK [Suspect]
     Indication: PRODUCT USED FOR UNKNOWN INDICATION
     Route: 065
     Dates: start: 20060303, end: 20060303

REACTIONS (1)
  - Nephrogenic systemic fibrosis [Not Recovered/Not Resolved]
